FAERS Safety Report 9767952 (Version 1)
Quarter: 2013Q4

REPORT INFORMATION
  Report Type: Report from Study
  Country: US (occurrence: US)
  Receive Date: 20131217
  Receipt Date: 20131217
  Transmission Date: 20140711
  Serious: Yes (Hospitalization, Other)
  Sender: FDA-Public Use
  Company Number: US-ABBVIE-13P-163-1178399-00

PATIENT
  Sex: Male
  Weight: 133.93 kg

DRUGS (10)
  1. ANDROGEL [Suspect]
     Indication: BLOOD TESTOSTERONE DECREASED
     Dosage: UNKNOWN
     Dates: start: 2005, end: 2007
  2. AVALIDE [Concomitant]
     Indication: HYPERTENSION
  3. LOVAZA [Concomitant]
     Indication: BLOOD TRIGLYCERIDES INCREASED
  4. FENOFIBRATE [Concomitant]
     Indication: BLOOD TRIGLYCERIDES INCREASED
  5. WELCHOL [Concomitant]
     Indication: BLOOD TRIGLYCERIDES INCREASED
  6. PROPANOLOL [Concomitant]
     Indication: ESSENTIAL TREMOR
  7. CO Q 10 [Concomitant]
     Indication: PRODUCT USED FOR UNKNOWN INDICATION
  8. CALCIUM [Concomitant]
     Indication: PRODUCT USED FOR UNKNOWN INDICATION
  9. VITAMIN C [Concomitant]
     Indication: PRODUCT USED FOR UNKNOWN INDICATION
  10. VITAMIN B12 [Concomitant]
     Indication: PRODUCT USED FOR UNKNOWN INDICATION

REACTIONS (8)
  - Cardiac arrest [Recovered/Resolved]
  - Loss of consciousness [Recovered/Resolved]
  - Pulmonary embolism [Unknown]
  - Deep vein thrombosis [Recovered/Resolved]
  - Asthma [Unknown]
  - Bone loss [Not Recovered/Not Resolved]
  - Mood swings [Unknown]
  - Pain [Not Recovered/Not Resolved]
